FAERS Safety Report 7434444-0 (Version None)
Quarter: 2011Q2

REPORT INFORMATION
  Report Type: 
  Country: None (occurrence: None)
  Receive Date: 20110425
  Receipt Date: 20110419
  Transmission Date: 20111010
  Serious: Yes (Hospitalization)
  Sender: FDA-Public Use
  Company Number: US-BRISTOL-MYERS SQUIBB COMPANY-15647795

PATIENT
  Age: 74 Year
  Sex: Male
  Weight: 73 kg

DRUGS (4)
  1. BLOOD PRESSURE MEDICATION [Concomitant]
  2. COUMADIN [Suspect]
     Indication: AORTIC VALVE REPLACEMENT
     Dates: start: 19990101
  3. CHOLESTEROL MEDICATION [Concomitant]
  4. FLOMAX [Concomitant]

REACTIONS (3)
  - INTERNATIONAL NORMALISED RATIO INCREASED [None]
  - PNEUMONIA [None]
  - MUSCLE HAEMORRHAGE [None]
